APPROVED DRUG PRODUCT: PAMIDRONATE DISODIUM
Active Ingredient: PAMIDRONATE DISODIUM
Strength: 90MG/VIAL
Dosage Form/Route: INJECTABLE;INJECTION
Application: A075773 | Product #002
Applicant: FRESENIUS KABI USA LLC
Approved: May 6, 2002 | RLD: No | RS: No | Type: DISCN